FAERS Safety Report 11549208 (Version 1)
Quarter: 2015Q3

REPORT INFORMATION
  Report Type: Spontaneous
  Country: IT (occurrence: IT)
  Receive Date: 20150924
  Receipt Date: 20150924
  Transmission Date: 20151125
  Serious: Yes (Hospitalization)
  Sender: FDA-Public Use
  Company Number: IT-PRINSTON PHARMACEUTICAL INC.-2015PRN00076

PATIENT
  Age: 61 Year
  Sex: Male

DRUGS (7)
  1. PAROXETINE [Suspect]
     Active Substance: PAROXETINE\PAROXETINE HYDROCHLORIDE
     Indication: DEPRESSED MOOD
     Dosage: 20 MG, 1X/DAY
     Dates: start: 201311, end: 201401
  2. VENLAFAXINE [Suspect]
     Active Substance: VENLAFAXINE HYDROCHLORIDE
     Indication: DEPRESSED MOOD
     Dosage: 150 MG, 1X/DAY
     Dates: start: 201311, end: 201401
  3. TENOFOVIR [Suspect]
     Active Substance: TENOFOVIR
     Dosage: 245 MG, 1X/DAY
     Dates: start: 201401
  4. INTERFERON [Concomitant]
     Active Substance: INTERFERON
     Dosage: UNK
     Dates: start: 200309
  5. VENLAFAXINE [Suspect]
     Active Substance: VENLAFAXINE HYDROCHLORIDE
     Dosage: 75 MG, 1X/DAY
     Dates: start: 201401
  6. TENOFOVIR [Suspect]
     Active Substance: TENOFOVIR
     Indication: HEPATITIS B
     Dosage: 245 MG, 1X/DAY
     Dates: start: 201303
  7. ZOLPIDEM [Concomitant]
     Active Substance: ZOLPIDEM\ZOLPIDEM TARTRATE
     Indication: DEPRESSED MOOD
     Dosage: 10 MG, 1X/DAY
     Dates: start: 201311

REACTIONS (2)
  - Hepatitis B [Recovered/Resolved]
  - Drug interaction [Recovered/Resolved]

NARRATIVE: CASE EVENT DATE: 201401
